FAERS Safety Report 13647193 (Version 1)
Quarter: 2017Q2

REPORT INFORMATION
  Report Type: Spontaneous
  Country: US (occurrence: US)
  Receive Date: 20170613
  Receipt Date: 20170613
  Transmission Date: 20170830
  Serious: No
  Sender: FDA-Public Use
  Company Number: US-ASTRAZENECA-2017SE61304

PATIENT
  Age: 846 Month
  Sex: Female
  Weight: 54.4 kg

DRUGS (14)
  1. VITAMIN C [Concomitant]
     Active Substance: ASCORBIC ACID
     Dosage: DAILY
  2. DULERA [Concomitant]
     Active Substance: FORMOTEROL FUMARATE DIHYDRATE\MOMETASONE FUROATE
     Indication: DYSPNOEA
     Dosage: DAILY
  3. SYMBICORT [Suspect]
     Active Substance: BUDESONIDE\FORMOTEROL FUMARATE DIHYDRATE
     Indication: DYSPNOEA
     Dosage: 160/4.5 MCG, ONE PUFFS DAILY
     Route: 055
     Dates: end: 20170413
  4. TURMERIC [Concomitant]
     Active Substance: HERBALS\TURMERIC
     Dosage: DAILY
  5. VITAMIN D3 [Concomitant]
     Active Substance: CHOLECALCIFEROL
     Dosage: DAILY
  6. SYMBICORT [Suspect]
     Active Substance: BUDESONIDE\FORMOTEROL FUMARATE DIHYDRATE
     Indication: DYSPNOEA
     Dosage: 160/4.5 MCG, TWO PUFFS DAILY
     Route: 055
     Dates: start: 20170401
  7. SYMBICORT [Suspect]
     Active Substance: BUDESONIDE\FORMOTEROL FUMARATE DIHYDRATE
     Indication: DYSPNOEA
     Dosage: 160/4.5 MCG, ONE PUFFS DAILY
     Route: 055
     Dates: end: 20170413
  8. ADVIL [Concomitant]
     Active Substance: IBUPROFEN
     Indication: BACK DISORDER
     Dosage: AS REQUIRED
  9. MULTIVITAMIN [Concomitant]
     Active Substance: VITAMINS
     Dosage: DAILY
  10. CURCUMIN [Concomitant]
     Active Substance: CURCUMIN
     Dosage: DAILY
  11. SYMBICORT [Suspect]
     Active Substance: BUDESONIDE\FORMOTEROL FUMARATE DIHYDRATE
     Indication: DYSPNOEA
     Dosage: 160/4.5 MCG, TWO PUFFS DAILY
     Route: 055
     Dates: start: 20170401
  12. ASPIRIN. [Concomitant]
     Active Substance: ASPIRIN
     Indication: BACK DISORDER
     Dosage: AS REQUIRED
  13. VITAMIN K2 [Concomitant]
     Active Substance: MENAQUINONE 6
     Dosage: DAILY
  14. GARLIC. [Concomitant]
     Active Substance: GARLIC
     Dosage: DAILY

REACTIONS (16)
  - Heart rate irregular [Recovering/Resolving]
  - Intentional product misuse [Recovered/Resolved]
  - Chest discomfort [Recovered/Resolved]
  - Blood pressure decreased [Recovered/Resolved]
  - Dyspnoea [Recovered/Resolved]
  - Rash papular [Recovered/Resolved]
  - Vision blurred [Recovered/Resolved]
  - Dry mouth [Recovered/Resolved]
  - Dysgeusia [Recovered/Resolved]
  - Upper respiratory tract infection [Recovered/Resolved]
  - Tremor [Unknown]
  - Product use in unapproved indication [Unknown]
  - Dysphonia [Recovered/Resolved]
  - Off label use [Unknown]
  - Respiration abnormal [Unknown]
  - Cough [Recovered/Resolved]

NARRATIVE: CASE EVENT DATE: 201704
